FAERS Safety Report 11124291 (Version 1)
Quarter: 2015Q2

REPORT INFORMATION
  Report Type: Spontaneous
  Country: AU (occurrence: None)
  Receive Date: 20150518
  Receipt Date: 20150518
  Transmission Date: 20150821
  Serious: Yes (Other)
  Sender: FDA-Public Use
  Company Number: 2015AU003931

PATIENT
  Age: 81 Year
  Sex: Male

DRUGS (2)
  1. CASODEX [Concomitant]
     Active Substance: BICALUTAMIDE
  2. ELIGARD [Suspect]
     Active Substance: LEUPROLIDE ACETATE
     Indication: PROSTATE CANCER
     Dosage: 45 MG, 6 MONTHLY, SUBCUTANEOUS
     Route: 058
     Dates: start: 20141003, end: 20150415

REACTIONS (3)
  - Drug ineffective [None]
  - Prostatic specific antigen increased [None]
  - Blood testosterone increased [None]
